FAERS Safety Report 17325955 (Version 3)
Quarter: 2020Q1

REPORT INFORMATION
  Report Type: Spontaneous
  Country: US (occurrence: US)
  Receive Date: 20200127
  Receipt Date: 20200303
  Transmission Date: 20200409
  Serious: No
  Sender: FDA-Public Use
  Company Number: US-PFIZER INC-2019508310

PATIENT
  Age: 79 Year
  Sex: Male

DRUGS (2)
  1. VYNDAQEL [Suspect]
     Active Substance: TAFAMIDIS MEGLUMINE
     Indication: AMYLOIDOSIS
     Dosage: 80 MG, DAILY (TAKE 4 CAPSULE BY ORAL ROUTE EVERY DAY)
     Route: 048
  2. VYNDAQEL [Suspect]
     Active Substance: TAFAMIDIS MEGLUMINE
     Indication: CARDIOMYOPATHY
     Dosage: 20 MG, 4X/DAY, (QUANTITY #120 (30 DAYS)
     Route: 048

REACTIONS (4)
  - Off label use [Unknown]
  - Oedema peripheral [Recovering/Resolving]
  - Dyspnoea exertional [Unknown]
  - Erythema [Unknown]
